FAERS Safety Report 7751439-8 (Version None)
Quarter: 2011Q3

REPORT INFORMATION
  Report Type: 
  Country: None (occurrence: None)
  Receive Date: 20110914
  Receipt Date: 20110901
  Transmission Date: 20111222
  Serious: Yes (Hospitalization, Other)
  Sender: FDA-Public Use
  Company Number: PHHY2011DE78594

PATIENT
  Sex: Female

DRUGS (9)
  1. GLEEVEC [Suspect]
     Dosage: 400 MG, DAILY
     Route: 048
     Dates: start: 20110712
  2. GLEEVEC [Suspect]
     Dosage: 800 MG, DAILY
     Route: 048
     Dates: start: 20081211, end: 20100525
  3. PANTOPRAZOLE [Concomitant]
     Dosage: 1 DF, QD
  4. GLEEVEC [Suspect]
     Dosage: 600 MG, DAILY
     Route: 048
     Dates: start: 20100526, end: 20110711
  5. LEVOTHYROXINE SODIUM [Concomitant]
     Dosage: 1 DF, QD
  6. MCP [Concomitant]
     Dosage: UNK
  7. LYRICA [Concomitant]
     Indication: PAIN
     Dosage: 3 DF, QD
  8. GLEEVEC [Suspect]
     Indication: DESMOID TUMOUR
     Dosage: 400 MG DAILY
     Route: 048
     Dates: start: 20071126, end: 20071210
  9. ASPIRIN [Concomitant]
     Dosage: 1 DF, QD

REACTIONS (13)
  - VERTIGO [None]
  - HYPOAESTHESIA [None]
  - CEREBRAL INFARCTION [None]
  - PARAESTHESIA [None]
  - MONOPARESIS [None]
  - RED BLOOD CELL COUNT DECREASED [None]
  - HAEMOGLOBIN DECREASED [None]
  - BUNDLE BRANCH BLOCK [None]
  - CEREBRAL ARTERY STENOSIS [None]
  - GAIT DISTURBANCE [None]
  - OEDEMA MUCOSAL [None]
  - HAEMATOCRIT DECREASED [None]
  - BLOOD CREATINE PHOSPHOKINASE INCREASED [None]
